FAERS Safety Report 6821431-6 (Version None)
Quarter: 2010Q3

REPORT INFORMATION
  Report Type: 
  Country: None (occurrence: None)
  Receive Date: 20100707
  Receipt Date: 20080825
  Transmission Date: 20110219
  Serious: Yes (Other)
  Sender: FDA-Public Use
  Company Number: US-PFIZER INC-2008064145

PATIENT
  Sex: Female
  Weight: 73 kg

DRUGS (5)
  1. ZOLOFT [Suspect]
     Indication: DEPRESSION
  2. ZOLOFT [Suspect]
     Indication: ANXIETY
  3. ZOLOFT [Suspect]
     Indication: PANIC ATTACK
  4. VALIUM [Concomitant]
  5. PAXIL [Concomitant]

REACTIONS (10)
  - ANXIETY [None]
  - DEPRESSION [None]
  - FEELING ABNORMAL [None]
  - HYPOMANIA [None]
  - INSOMNIA [None]
  - PANIC ATTACK [None]
  - PRESSURE OF SPEECH [None]
  - STRESS [None]
  - TANGENTIALITY [None]
  - WITHDRAWAL SYNDROME [None]
